FAERS Safety Report 20081899 (Version 2)
Quarter: 2021Q4

REPORT INFORMATION
  Report Type: Spontaneous
  Country: US (occurrence: US)
  Receive Date: 20211117
  Receipt Date: 20211213
  Transmission Date: 20220303
  Serious: No
  Sender: FDA-Public Use
  Company Number: US-GW PHARMA-202111USGW05547

PATIENT

DRUGS (1)
  1. EPIDIOLEX [Suspect]
     Active Substance: CANNABIDIOL
     Indication: Seizure
     Dosage: 280 MILLIGRAM, BID, DOSE INCREASE
     Route: 048
     Dates: start: 20210407

REACTIONS (4)
  - Pruritus [Unknown]
  - Erythema [Unknown]
  - Seizure [Unknown]
  - Rash [Unknown]

NARRATIVE: CASE EVENT DATE: 20210101
